FAERS Safety Report 19005052 (Version 1)
Quarter: 2021Q1

REPORT INFORMATION
  Report Type: Spontaneous
  Country: US (occurrence: US)
  Receive Date: 20210313
  Receipt Date: 20210313
  Transmission Date: 20210420
  Serious: No
  Sender: FDA-Public Use
  Company Number: US-SA-2021SA064408

PATIENT
  Sex: Female

DRUGS (2)
  1. FOSAMAX [Concomitant]
     Active Substance: ALENDRONATE SODIUM
     Indication: OSTEOPOROSIS
  2. MULTAQ [Suspect]
     Active Substance: DRONEDARONE
     Dosage: 1 DF, BID
     Dates: start: 202011

REACTIONS (2)
  - Dyspnoea [Unknown]
  - Laryngitis [Unknown]
